FAERS Safety Report 5542859-0 (Version None)
Quarter: 2007Q4

REPORT INFORMATION
  Report Type: 
  Country: None (occurrence: None)
  Receive Date: 20071210
  Receipt Date: 20071128
  Transmission Date: 20080405
  Serious: Yes (Hospitalization, Other)
  Sender: FDA-Public Use
  Company Number: AU-PFIZER INC-2007096862

PATIENT
  Sex: Female

DRUGS (4)
  1. LYRICA [Suspect]
     Indication: COMPLEX REGIONAL PAIN SYNDROME
     Route: 048
     Dates: start: 20071020, end: 20071022
  2. NEURONTIN [Suspect]
     Indication: PARAESTHESIA
  3. NEURONTIN [Suspect]
     Indication: PAIN
  4. EFFEXOR [Concomitant]
     Route: 048

REACTIONS (9)
  - AGITATION [None]
  - APHASIA [None]
  - FATIGUE [None]
  - FORMICATION [None]
  - NAUSEA [None]
  - PARAESTHESIA [None]
  - PRURITUS [None]
  - PSYCHOMOTOR RETARDATION [None]
  - VOMITING [None]
